FAERS Safety Report 8369607-3 (Version None)
Quarter: 2012Q2

REPORT INFORMATION
  Report Type: 
  Country: None (occurrence: None)
  Receive Date: 20120518
  Receipt Date: 20120515
  Transmission Date: 20120825
  Serious: Yes (Death, Hospitalization, Other)
  Sender: FDA-Public Use
  Company Number: PHHY2012IN042094

PATIENT
  Sex: Female

DRUGS (1)
  1. ZOLEDRONOC ACID [Suspect]
     Indication: OSTEOPOROSIS
     Dosage: 5 MG, YEARLY
     Route: 042
     Dates: start: 20120303

REACTIONS (6)
  - GENERAL PHYSICAL HEALTH DETERIORATION [None]
  - CARDIAC ARREST [None]
  - BILE DUCT OBSTRUCTION [None]
  - MULTI-ORGAN FAILURE [None]
  - SEPSIS [None]
  - URINARY TRACT OBSTRUCTION [None]
